FAERS Safety Report 21419846 (Version 1)
Quarter: 2022Q4

REPORT INFORMATION
  Report Type: Spontaneous
  Country: US (occurrence: None)
  Receive Date: 20221006
  Receipt Date: 20221006
  Transmission Date: 20230112
  Serious: Yes (Hospitalization)
  Sender: FDA-Public Use
  Company Number: None

PATIENT
  Age: 57 Year
  Sex: Female
  Weight: 63.23 kg

DRUGS (15)
  1. SCEMBLIX [Suspect]
     Active Substance: ASCIMINIB HYDROCHLORIDE
     Indication: Chronic myeloid leukaemia
     Dosage: FREQUENCY : DAILY;?
     Route: 048
     Dates: start: 20220322
  2. ACYCLOVIR [Concomitant]
     Active Substance: ACYCLOVIR
  3. GABAPENTIN [Concomitant]
     Active Substance: GABAPENTIN
  4. METFORMIN [Concomitant]
     Active Substance: METFORMIN HYDROCHLORIDE
  5. METOCLOPRAMIDE [Concomitant]
     Active Substance: METOCLOPRAMIDE
  6. NITROGLYCERIN [Concomitant]
     Active Substance: NITROGLYCERIN
  7. ONDANSETRON [Concomitant]
     Active Substance: ONDANSETRON
  8. OXYBUTYNIN [Concomitant]
     Active Substance: OXYBUTYNIN
  9. ACETAMINOPHEN\OXYCODONE HYDROCHLORIDE [Concomitant]
     Active Substance: ACETAMINOPHEN\OXYCODONE HYDROCHLORIDE
  10. PANTOPRAZOLE [Concomitant]
     Active Substance: PANTOPRAZOLE
  11. PHENAZOPYRIDINE [Concomitant]
     Active Substance: PHENAZOPYRIDINE
  12. PROMETHAZINE [Concomitant]
     Active Substance: PROMETHAZINE HYDROCHLORIDE
  13. RANITIDINE [Concomitant]
     Active Substance: RANITIDINE
  14. SYNRIBO [Concomitant]
     Active Substance: OMACETAXINE MEPESUCCINATE
  15. TRAMADOL [Concomitant]
     Active Substance: TRAMADOL

REACTIONS (1)
  - Sinusitis [None]
